FAERS Safety Report 15222977 (Version 1)
Quarter: 2018Q3

REPORT INFORMATION
  Report Type: Spontaneous
  Country: US (occurrence: US)
  Receive Date: 20180705
  Receipt Date: 20180705
  Transmission Date: 20181010
  Serious: No
  Sender: FDA-Public Use
  Company Number: None

PATIENT
  Age: 28 Year
  Sex: Female

DRUGS (1)
  1. STELARA [Suspect]
     Active Substance: USTEKINUMAB
     Dosage: ?          OTHER FREQUENCY:OTHER;?
     Route: 058

REACTIONS (2)
  - Procedural complication [None]
  - Surgery [None]

NARRATIVE: CASE EVENT DATE: 20180301
